FAERS Safety Report 8189528-9 (Version None)
Quarter: 2012Q1

REPORT INFORMATION
  Report Type: 
  Country: None (occurrence: None)
  Receive Date: 20120307
  Receipt Date: 20120227
  Transmission Date: 20120608
  Serious: Yes (Other)
  Sender: FDA-Public Use
  Company Number: CA-JNJFOC-20120213515

PATIENT
  Sex: Male
  Weight: 86 kg

DRUGS (6)
  1. METHOTREXATE [Concomitant]
     Route: 048
     Dates: start: 19880101
  2. BENADRYL [Concomitant]
     Indication: PREMEDICATION
     Dosage: BEFORE AND AFTER INFUSION FOR 2 DAYS
     Route: 048
     Dates: start: 20100101
  3. VITAMIN D [Concomitant]
     Route: 065
  4. CALCIUM [Concomitant]
     Route: 065
  5. REMICADE [Suspect]
     Indication: RHEUMATOID ARTHRITIS
     Route: 042
  6. CELEBREX [Concomitant]
     Route: 065
     Dates: start: 20060101

REACTIONS (2)
  - FALL [None]
  - TIBIA FRACTURE [None]
